FAERS Safety Report 17858193 (Version 1)
Quarter: 2020Q2

REPORT INFORMATION
  Report Type: Spontaneous
  Country: ES (occurrence: ES)
  Receive Date: 20200604
  Receipt Date: 20200604
  Transmission Date: 20200714
  Serious: Yes (Hospitalization)
  Sender: FDA-Public Use
  Company Number: ES-TEVA-2020-ES-1243729

PATIENT
  Age: 89 Year
  Sex: Female
  Weight: 57.6 kg

DRUGS (1)
  1. ENALAPRIL (2142A) [Suspect]
     Active Substance: ENALAPRIL
     Indication: HYPERTENSION
     Dosage: 40 MILLIGRAM DAILY; 20MG-0-20MG
     Route: 048
     Dates: start: 20120711

REACTIONS (1)
  - Inappropriate antidiuretic hormone secretion [Recovered/Resolved]

NARRATIVE: CASE EVENT DATE: 20191106
